FAERS Safety Report 9736335 (Version 1)
Quarter: 2013Q4

REPORT INFORMATION
  Report Type: Report from Study
  Country: US (occurrence: US)
  Receive Date: 20131206
  Receipt Date: 20131206
  Transmission Date: 20140711
  Serious: Yes (Other)
  Sender: FDA-Public Use
  Company Number: US-ROCHE-1308145

PATIENT
  Age: 8 Year
  Sex: Male
  Weight: 23.4 kg

DRUGS (2)
  1. NUTROPIN [Suspect]
     Indication: GROWTH HORMONE DEFICIENCY
     Dosage: NUSPIN 10
     Route: 058
     Dates: end: 20131001
  2. NUTROPIN [Suspect]
     Indication: BODY HEIGHT BELOW NORMAL
     Dosage: ONSET DATE: 01/OCT/2013, NUSPIN 10
     Route: 058

REACTIONS (4)
  - Inappropriate affect [Unknown]
  - Cardiac murmur [Unknown]
  - Pineal gland cyst [Unknown]
  - Weight increased [Unknown]
